FAERS Safety Report 8202598 (Version 3)
Quarter: 2015Q4

REPORT INFORMATION
  Report Type: Spontaneous
  Country: US (occurrence: US)
  Receive Date: 20111027
  Receipt Date: 20151228
  Transmission Date: 20160305
  Serious: Yes (Other)
  Sender: FDA-Public Use
  Company Number: US-BAYER-2011-101139

PATIENT
  Age: 25 Year
  Sex: Female
  Weight: 68.03 kg

DRUGS (6)
  1. SUMATRIPTAN SUCCINATE. [Concomitant]
     Active Substance: SUMATRIPTAN SUCCINATE
     Dosage: 50 MG, UNK
  2. CYCLOBENZAPRINE [Concomitant]
     Active Substance: CYCLOBENZAPRINE
     Dosage: 5 MG, UNK
  3. OCELLA [Suspect]
     Active Substance: DROSPIRENONE\ETHINYL ESTRADIOL
     Indication: CONTRACEPTION
     Dosage: UNK
     Dates: start: 201008, end: 201101
  4. PREDNISONE. [Concomitant]
     Active Substance: PREDNISONE
     Indication: INTERVERTEBRAL DISC PROTRUSION
  5. HYDROCODONE BITARTRATE AND ACETAMINOPHEN [Concomitant]
     Active Substance: ACETAMINOPHEN\HYDROCODONE BITARTRATE
     Dosage: 10-325 MG
  6. METHYLPREDNISOLONE. [Concomitant]
     Active Substance: METHYLPREDNISOLONE
     Dosage: 4 MG, UNK

REACTIONS (8)
  - Pain [None]
  - Anhedonia [None]
  - Palpitations [None]
  - Anxiety [None]
  - Embolism arterial [None]
  - General physical health deterioration [None]
  - Emotional distress [None]
  - Supraventricular tachycardia [None]

NARRATIVE: CASE EVENT DATE: 20110311
